FAERS Safety Report 20663786 (Version 1)
Quarter: 2022Q2

REPORT INFORMATION
  Report Type: Spontaneous
  Country: DK (occurrence: DK)
  Receive Date: 20220401
  Receipt Date: 20220401
  Transmission Date: 20220721
  Serious: Yes (Death)
  Sender: FDA-Public Use
  Company Number: None

PATIENT
  Age: 50 Year
  Sex: Male

DRUGS (10)
  1. QUETIAPINE [Suspect]
     Active Substance: QUETIAPINE
     Indication: Mental disorder
     Dosage: STRENGTH: 300 MG, UNIT DOSE: 600 MG, FREQUENCY TIME- 1 DAY,
     Route: 048
     Dates: start: 20190913
  2. ZUCLOPENTHIXOL [Suspect]
     Active Substance: ZUCLOPENTHIXOL
     Indication: Mental disorder
     Dosage: STRENGTH: 2 MG, UNIT DOSE: 2 MG, FREQUENCY TIME- 1 DAY,
     Route: 048
     Dates: start: 20200716
  3. PROMETHAZINE HYDROCHLORIDE [Suspect]
     Active Substance: PROMETHAZINE HYDROCHLORIDE
     Indication: Insomnia
     Dosage: STRENGTH: 25 MG, UNIT DOSE: 50 MG, FREQUENCY TIME- 1 DAY,
     Route: 048
     Dates: start: 20161222
  4. ZUCLOPENTHIXOL [Suspect]
     Active Substance: ZUCLOPENTHIXOL
     Indication: Mental disorder
     Dosage: STRENGTH: 10 MG, UNIT DOSE: 20 MG, FREQUENCY TIME- 1 DAY,
     Route: 048
     Dates: start: 20200511
  5. VENLAFAXINE [Suspect]
     Active Substance: VENLAFAXINE HYDROCHLORIDE
     Indication: Depression
     Dosage: STRENGTH: 150 MG, UNIT DOSE: 300 MG, FREQUENCY TIME- 1 DAY,
     Route: 048
     Dates: start: 20171213
  6. PARACETAMOL ORIFARM [Concomitant]
     Indication: Pain
     Dates: start: 20190311
  7. XARELTO [Concomitant]
     Active Substance: RIVAROXABAN
     Indication: Thrombosis prophylaxis
     Dates: start: 20170405
  8. ZOPICLONE [Concomitant]
     Active Substance: ZOPICLONE
     Indication: Insomnia
     Dates: start: 20170301
  9. LAMICTAL [Concomitant]
     Active Substance: LAMOTRIGINE
     Indication: Pain
     Dates: start: 20171204
  10. METFORMIN HYDROCHLORIDE [Concomitant]
     Active Substance: METFORMIN HYDROCHLORIDE
     Indication: Type 2 diabetes mellitus
     Dates: start: 20200422

REACTIONS (4)
  - Pallor [Fatal]
  - Malaise [Fatal]
  - Toxicity to various agents [Fatal]
  - Sudden death [Fatal]

NARRATIVE: CASE EVENT DATE: 20211126
